FAERS Safety Report 10524643 (Version 1)
Quarter: 2014Q4

REPORT INFORMATION
  Report Type: Spontaneous
  Country: CA (occurrence: None)
  Receive Date: 20141010
  Receipt Date: 20141010
  Transmission Date: 20150528
  Serious: Yes (Other)
  Sender: FDA-Public Use
  Company Number: 2014-002984

PATIENT
  Age: 25 Year
  Sex: Female
  Weight: 75 kg

DRUGS (5)
  1. REMICADE [Suspect]
     Active Substance: INFLIXIMAB
     Dosage: 1 EVERY 8 WEEKS
     Route: 042
  2. ERGOCALCIFEROL (ERGOCALCIFEROL) [Concomitant]
     Active Substance: ERGOCALCIFEROL
  3. IMURAN [Suspect]
     Active Substance: AZATHIOPRINE
     Route: 048
  4. ASACOL [Suspect]
     Active Substance: MESALAMINE
     Route: 048
  5. CALCIUM (CALCIUM) [Concomitant]
     Active Substance: CALCIUM

REACTIONS (3)
  - Abortion spontaneous [None]
  - Crohn^s disease [None]
  - Exposure during pregnancy [None]
